FAERS Safety Report 5499270-0 (Version None)
Quarter: 2007Q4

REPORT INFORMATION
  Report Type: 
  Country: None (occurrence: None)
  Receive Date: 20071026
  Receipt Date: 20070529
  Transmission Date: 20080405
  Serious: Yes (Other)
  Sender: FDA-Public Use
  Company Number: PHBS2007NO16884

PATIENT
  Age: 53 Year
  Sex: Female

DRUGS (1)
  1. VOLTAREN [Suspect]
     Indication: ROTATOR CUFF SYNDROME
     Dosage: 50 MG, BID
     Route: 048
     Dates: start: 20051013, end: 20051018

REACTIONS (2)
  - DEAFNESS UNILATERAL [None]
  - TINNITUS [None]
